FAERS Safety Report 5663131-4 (Version None)
Quarter: 2008Q1

REPORT INFORMATION
  Report Type: 
  Country: None (occurrence: None)
  Receive Date: 20080313
  Receipt Date: 20080311
  Transmission Date: 20080703
  Serious: Yes (Other)
  Sender: FDA-Public Use
  Company Number: B0511787A

PATIENT
  Age: 86 Year
  Sex: Female

DRUGS (1)
  1. ARIXTRA [Suspect]
     Indication: KNEE ARTHROPLASTY
     Dosage: 1.5MG PER DAY
     Route: 058
     Dates: start: 20080223, end: 20080228

REACTIONS (2)
  - DYSARTHRIA [None]
  - PARALYSIS [None]
